FAERS Safety Report 12838210 (Version 1)
Quarter: 2016Q4

REPORT INFORMATION
  Report Type: Spontaneous
  Country: US (occurrence: US)
  Receive Date: 20161011
  Receipt Date: 20161011
  Transmission Date: 20170207
  Serious: Yes (Other)
  Sender: FDA-Public Use
  Company Number: None

PATIENT
  Sex: Female
  Weight: 78.93 kg

DRUGS (1)
  1. COSENTYX [Suspect]
     Active Substance: SECUKINUMAB
     Indication: RHEUMATOID ARTHRITIS
     Dosage: COSENTYX 150MG SUBCUTANEOUSLY Q4WEEKS
     Route: 058
     Dates: start: 201609

REACTIONS (3)
  - Hyperhidrosis [None]
  - Hot flush [None]
  - Feeling cold [None]
